FAERS Safety Report 8648290 (Version 3)
Quarter: 2013Q1

REPORT INFORMATION
  Report Type: Report from Study
  Country: JP (occurrence: JP)
  Receive Date: 20120703
  Receipt Date: 20130204
  Transmission Date: 20140127
  Serious: Yes (Other)
  Sender: FDA-Public Use
  Company Number: JP-VERTEX PHARMACEUTICALS INC.-AE-2012-009485

PATIENT
  Age: 66 Year
  Sex: Female

DRUGS (13)
  1. VX-950 (TELAPREVIR) [Suspect]
     Indication: CHRONIC HEPATITIS C
     Dosage: 2250 MG, QD
     Route: 048
     Dates: start: 20120308, end: 20120417
  2. VX-950 (TELAPREVIR) [Suspect]
     Dosage: 1500 MG, QD
     Route: 048
     Dates: start: 20120418, end: 20120529
  3. REBETOL [Suspect]
     Indication: CHRONIC HEPATITIS C
     Dosage: 600 MG, QD
     Route: 048
     Dates: start: 20120307, end: 20120403
  4. REBETOL [Suspect]
     Dosage: 200 MG, QD
     Route: 048
     Dates: start: 20120404, end: 20120821
  5. PEGINTRON [Concomitant]
     Dosage: 0.9 ?G/KG, QW
     Route: 058
     Dates: start: 20120307, end: 20120313
  6. PEGINTRON [Concomitant]
     Dosage: 0.6 ?G/KG, QW
     Route: 058
     Dates: start: 20120314, end: 20120320
  7. PEGINTRON [Concomitant]
     Dosage: 0.7 ?G/KG, QW
     Route: 058
     Dates: start: 20120321, end: 20120403
  8. PEGINTRON [Concomitant]
     Dosage: 0.9 ?G/KG, QW
     Route: 058
     Dates: start: 20120404, end: 20120417
  9. PEGINTRON [Concomitant]
     Dosage: 1.1 ?G/KG, QW
     Route: 058
     Dates: start: 20120418, end: 20120516
  10. PEGINTRON [Concomitant]
     Dosage: 0.9 ?G/KG, QW
     Route: 058
     Dates: start: 20120523, end: 20120620
  11. PEGINTRON [Concomitant]
     Dosage: 1.1 ?G/KG, QW
     Route: 058
     Dates: start: 20120627, end: 20120815
  12. FERROMIA [Concomitant]
     Dosage: 100 MG, QD
     Route: 048
     Dates: end: 20120424
  13. URSO [Concomitant]
     Dosage: 600 MG, QD
     Route: 048

REACTIONS (1)
  - White blood cell count decreased [Recovered/Resolved]
